FAERS Safety Report 21935762 (Version 1)
Quarter: 2023Q1

REPORT INFORMATION
  Report Type: Spontaneous
  Country: US (occurrence: US)
  Receive Date: 20230201
  Receipt Date: 20230201
  Transmission Date: 20230417
  Serious: No
  Sender: FDA-Public Use
  Company Number: US-IGSA-BIG0017964

PATIENT
  Age: 5 Year
  Sex: Male

DRUGS (1)
  1. ALPHANINE SD [Suspect]
     Active Substance: COAGULATION FACTOR IX HUMAN
     Indication: Factor IX deficiency
     Dosage: 2000 IU INTERNATIONAL UNIT(S), QD
     Route: 042
     Dates: start: 202107

REACTIONS (1)
  - Concussion [Unknown]

NARRATIVE: CASE EVENT DATE: 20220101
